FAERS Safety Report 9201585 (Version 1)
Quarter: 2013Q2

REPORT INFORMATION
  Report Type: Spontaneous
  Country: US (occurrence: US)
  Receive Date: 20130401
  Receipt Date: 20130401
  Transmission Date: 20140414
  Serious: Yes (Other)
  Sender: FDA-Public Use
  Company Number: US-BAYER-2013-037401

PATIENT
  Age: 48 Year
  Sex: Female

DRUGS (3)
  1. YASMIN [Suspect]
  2. LISINOPRIL [Concomitant]
     Dosage: 10 MG, UNK
     Dates: start: 20110418
  3. PERCOCET [Concomitant]
     Dosage: UNK UNK, PRN

REACTIONS (1)
  - Pulmonary embolism [None]
